FAERS Safety Report 6144778-8 (Version None)
Quarter: 2009Q2

REPORT INFORMATION
  Report Type: 
  Country: None (occurrence: None)
  Receive Date: 20090401
  Receipt Date: 20090401
  Transmission Date: 20091009
  Serious: Yes (Other)
  Sender: FDA-Public Use
  Company Number: None

PATIENT
  Sex: Male
  Weight: 89.55 kg

DRUGS (2)
  1. SIMVASTATIN [Suspect]
     Dosage: 20MG TABLET 20 MG QHS ORAL
     Dates: start: 20080506, end: 20090401
  2. ACYCLOVIR [Concomitant]

REACTIONS (1)
  - FATIGUE [None]
